FAERS Safety Report 7455592-5 (Version None)
Quarter: 2011Q2

REPORT INFORMATION
  Report Type: 
  Country: None (occurrence: None)
  Receive Date: 20110503
  Receipt Date: 20110427
  Transmission Date: 20111010
  Serious: Yes (Hospitalization, Other)
  Sender: FDA-Public Use
  Company Number: US-ABBOTT-11P-163-0722542-00

PATIENT
  Sex: Male
  Weight: 81.72 kg

DRUGS (12)
  1. SOMA [Concomitant]
     Indication: MUSCLE SPASMS
  2. VITAMIN E [Concomitant]
     Indication: PRODUCT USED FOR UNKNOWN INDICATION
  3. VITAMIN D [Concomitant]
     Indication: VITAMIN SUPPLEMENTATION
  4. SPIRULINA [Concomitant]
     Indication: IMMUNE SYSTEM DISORDER
  5. HUMIRA [Suspect]
     Indication: PSORIATIC ARTHROPATHY
     Dates: start: 20020101
  6. RANITIDINE [Concomitant]
     Indication: GASTROOESOPHAGEAL REFLUX DISEASE
  7. UROXATRAL [Concomitant]
     Indication: URINARY TRACT DISORDER
  8. WHEATGRASS [Concomitant]
     Indication: IMMUNE SYSTEM DISORDER
  9. VICODIN [Concomitant]
     Indication: PAIN
  10. TRIPLEFLEX [Concomitant]
     Indication: ARTHROPATHY
  11. STOOL SOFTENER [Concomitant]
     Indication: PRODUCT USED FOR UNKNOWN INDICATION
  12. FISH OIL [Concomitant]
     Indication: SUPPLEMENTATION THERAPY

REACTIONS (10)
  - MENISCUS LESION [None]
  - OSTEOARTHRITIS [None]
  - PENIS DISORDER [None]
  - ARTHRALGIA [None]
  - SYNOVIAL CYST [None]
  - EXOSTOSIS [None]
  - DEVICE RELATED INFECTION [None]
  - HYPERCALCAEMIA [None]
  - PARAESTHESIA [None]
  - PYREXIA [None]
